FAERS Safety Report 19412628 (Version 1)
Quarter: 2021Q2

REPORT INFORMATION
  Report Type: Spontaneous
  Country: CA (occurrence: CA)
  Receive Date: 20210614
  Receipt Date: 20210614
  Transmission Date: 20210717
  Serious: Yes (Life-Threatening, Hospitalization)
  Sender: FDA-Public Use
  Company Number: CA-ACCORD-227856

PATIENT
  Age: 56 Year
  Sex: Female
  Weight: 76 kg

DRUGS (5)
  1. DEXAMETHASONE. [Concomitant]
     Active Substance: DEXAMETHASONE
  2. PACLITAXEL/PACLITAXEL LIPOSOME [Suspect]
     Active Substance: PACLITAXEL
     Indication: UTERINE CANCER
     Dosage: 240.0 MILLIGRAM
     Route: 040
  3. FAMOTIDINE. [Concomitant]
     Active Substance: FAMOTIDINE
  4. DIPHENHYDRAMINE. [Concomitant]
     Active Substance: DIPHENHYDRAMINE
  5. ONDANSETRON [Concomitant]
     Active Substance: ONDANSETRON

REACTIONS (6)
  - Unresponsive to stimuli [Unknown]
  - Tachycardia [Unknown]
  - Hyperhidrosis [Unknown]
  - Cardiac arrest [Unknown]
  - Oxygen saturation decreased [Unknown]
  - Acute myocardial infarction [Unknown]
